FAERS Safety Report 24933662 (Version 1)
Quarter: 2025Q1

REPORT INFORMATION
  Report Type: Report from Study
  Country: US (occurrence: US)
  Receive Date: 20250206
  Receipt Date: 20250206
  Transmission Date: 20250408
  Serious: Yes (Hospitalization, Other)
  Sender: EXELIXIS
  Company Number: US-EXELIXIS-CABO-24072933

PATIENT
  Sex: Male
  Weight: 84.984 kg

DRUGS (1)
  1. CABOMETYX [Suspect]
     Active Substance: CABOZANTINIB S-MALATE
     Indication: Renal cancer
     Dosage: 20 MG, QD
     Route: 048
     Dates: start: 202112

REACTIONS (10)
  - Dehydration [Recovering/Resolving]
  - Surgery [Unknown]
  - Malignant neoplasm progression [Unknown]
  - Thyroid disorder [Unknown]
  - Fatigue [Unknown]
  - Diarrhoea [Recovering/Resolving]
  - Spleen disorder [Unknown]
  - Procedural pain [Unknown]
  - Flatulence [Unknown]
  - Feeding disorder [Unknown]
